FAERS Safety Report 8399570-0 (Version None)
Quarter: 2012Q2

REPORT INFORMATION
  Report Type: 
  Country: None (occurrence: None)
  Receive Date: 20120323
  Receipt Date: 20110114
  Transmission Date: 20120825
  Serious: Yes (Other)
  Sender: FDA-Public Use
  Company Number: 163-21880-11011851

PATIENT
  Age: 43 Year
  Sex: Male

DRUGS (3)
  1. REVLIMID [Suspect]
     Indication: MULTIPLE MYELOMA
     Dosage: 25 MG, 1 IN 1 D, PO, 10 MG, 1 IN 1 D, PO
     Route: 048
     Dates: start: 20101117
  2. REVLIMID [Suspect]
     Indication: MULTIPLE MYELOMA
     Dosage: 25 MG, 1 IN 1 D, PO, 10 MG, 1 IN 1 D, PO
     Route: 048
     Dates: start: 20091201
  3. ASPIRIN [Concomitant]

REACTIONS (4)
  - RENAL IMPAIRMENT [None]
  - DYSPEPSIA [None]
  - FATIGUE [None]
  - HAEMOGLOBIN DECREASED [None]
